FAERS Safety Report 6187074-5 (Version None)
Quarter: 2009Q2

REPORT INFORMATION
  Report Type: 
  Country: None (occurrence: None)
  Receive Date: 20090512
  Receipt Date: 20080408
  Transmission Date: 20091009
  Serious: Yes (Other)
  Sender: FDA-Public Use
  Company Number: US-PFIZER INC-2008031137

PATIENT
  Sex: Male
  Weight: 68 kg

DRUGS (2)
  1. SUTENT [Suspect]
     Indication: RENAL CANCER
     Dosage: 50 MG, 1X/DAY
     Dates: start: 20080301, end: 20080405
  2. TAMSULOSIN HYDROCHLORIDE [Concomitant]

REACTIONS (6)
  - BLOOD TEST ABNORMAL [None]
  - BRONCHITIS [None]
  - DIZZINESS [None]
  - DYSPNOEA [None]
  - LOSS OF CONSCIOUSNESS [None]
  - SKIN LACERATION [None]
